FAERS Safety Report 10394047 (Version 1)
Quarter: 2014Q3

REPORT INFORMATION
  Report Type: Spontaneous
  Country: FR (occurrence: FR)
  Receive Date: 20140819
  Receipt Date: 20140819
  Transmission Date: 20150326
  Serious: Yes (Hospitalization, Other)
  Sender: FDA-Public Use
  Company Number: FR-US-EMD SERONO, INC.-7313159

PATIENT
  Age: 15 Year
  Sex: Male

DRUGS (8)
  1. 5 FU [Concomitant]
     Active Substance: FLUOROURACIL
     Indication: CHEMOTHERAPY
     Dosage: COURSE N?1: 15/11/2013, COURSE N?2: 06/12/2013, COURSE N?3: 27/12/2013, COURSE N?4: 27/01/2014, COUR
     Dates: start: 20131115, end: 20140303
  2. REBIF [Suspect]
     Active Substance: INTERFERON BETA-1A
     Indication: NASOPHARYNGEAL CANCER
     Route: 058
     Dates: start: 20140417, end: 20140716
  3. REBIF [Suspect]
     Active Substance: INTERFERON BETA-1A
     Route: 058
  4. LEPTICUR [Concomitant]
     Active Substance: TROPATEPINE HYDROCHLORIDE
     Indication: PAIN IN JAW
  5. REBIF [Suspect]
     Active Substance: INTERFERON BETA-1A
     Route: 058
     Dates: start: 20140505
  6. REBIF [Suspect]
     Active Substance: INTERFERON BETA-1A
     Route: 058
     Dates: start: 20140625, end: 20140716
  7. CISPLATIN. [Concomitant]
     Active Substance: CISPLATIN
     Indication: CHEMOTHERAPY
     Dosage: COURSE N?1: 15/11/2013, COURSE N?2: 06/12/2013, COURSE N?3: 27/12/2013, COURSE N?4: 27/01/2014, COUR
     Dates: start: 20131115, end: 20140303
  8. REBIF [Suspect]
     Active Substance: INTERFERON BETA-1A
     Route: 058
     Dates: start: 20140611

REACTIONS (11)
  - Anxiety [Recovered/Resolved]
  - Off label use [Unknown]
  - Decreased appetite [Recovering/Resolving]
  - Headache [Recovering/Resolving]
  - Visual field defect [Unknown]
  - Pyrexia [Recovering/Resolving]
  - Paraesthesia [Recovering/Resolving]
  - Walking disability [Recovering/Resolving]
  - Myalgia [Recovering/Resolving]
  - Nausea [Recovered/Resolved]
  - Vomiting [Recovering/Resolving]

NARRATIVE: CASE EVENT DATE: 20140507
